FAERS Safety Report 22815012 (Version 3)
Quarter: 2023Q4

REPORT INFORMATION
  Report Type: Spontaneous
  Country: FR (occurrence: FR)
  Receive Date: 20230811
  Receipt Date: 20231219
  Transmission Date: 20240110
  Serious: Yes (Death)
  Sender: FDA-Public Use
  Company Number: FR-PFIZER INC-PV202300138182

PATIENT
  Age: 49 Year
  Sex: Female
  Weight: 69 kg

DRUGS (4)
  1. MYLOTARG [Suspect]
     Active Substance: GEMTUZUMAB OZOGAMICIN
     Dosage: ONCE DAILY ON D1, D7 AND D11
     Dates: start: 20211123
  2. CYTARABINE [Suspect]
     Active Substance: CYTARABINE
  3. FLUDARABINE [Suspect]
     Active Substance: FLUDARABINE PHOSPHATE
  4. IDARUBICIN [Suspect]
     Active Substance: IDARUBICIN

REACTIONS (1)
  - Death [Fatal]

NARRATIVE: CASE EVENT DATE: 20211221
